FAERS Safety Report 18623055 (Version 1)
Quarter: 2020Q4

REPORT INFORMATION
  Report Type: Spontaneous
  Country: US (occurrence: US)
  Receive Date: 20201215
  Receipt Date: 20201215
  Transmission Date: 20210114
  Serious: No
  Sender: FDA-Public Use
  Company Number: None

PATIENT
  Sex: Female

DRUGS (18)
  1. GABAPENTION [Concomitant]
  2. LORATADINE. [Concomitant]
     Active Substance: LORATADINE
  3. LEVOTHYROXIN [Concomitant]
     Active Substance: LEVOTHYROXINE
  4. SETRELINE [Concomitant]
  5. FAMOTIDINE. [Concomitant]
     Active Substance: FAMOTIDINE
  6. LORAZEPAM. [Concomitant]
     Active Substance: LORAZEPAM
  7. ROPINROLE [Concomitant]
     Active Substance: ROPINIROLE
  8. ALPRAZOLAM. [Concomitant]
     Active Substance: ALPRAZOLAM
  9. LOSARTRAN POT [Concomitant]
  10. AMANTADINE. [Concomitant]
     Active Substance: AMANTADINE HYDROCHLORIDE
  11. DICOFENAC [Concomitant]
  12. ATORVASTATIN [Concomitant]
     Active Substance: ATORVASTATIN
  13. BREO ELPTAINH [Concomitant]
  14. CETIRIZINE [Concomitant]
     Active Substance: CETIRIZINE HYDROCHLORIDE
  15. DOXYCYLINE [Concomitant]
     Active Substance: DOXYCYCLINE
  16. FLUXETINE [Concomitant]
  17. ESBRIET [Suspect]
     Active Substance: PIRFENIDONE
     Indication: IDIOPATHIC PULMONARY FIBROSIS
     Dosage: ?          OTHER FREQUENCY:THREE TIMES;?
     Route: 048
     Dates: start: 20180830
  18. PREDNISONE. [Concomitant]
     Active Substance: PREDNISONE

REACTIONS (1)
  - Dyspnoea [None]
